FAERS Safety Report 17269366 (Version 1)
Quarter: 2020Q1

REPORT INFORMATION
  Report Type: Spontaneous
  Country: IT (occurrence: IT)
  Receive Date: 20200114
  Receipt Date: 20200114
  Transmission Date: 20200409
  Serious: Yes (Other)
  Sender: FDA-Public Use
  Company Number: IT-MYLANLABS-2020M1003518

PATIENT
  Age: 53 Year
  Sex: Male

DRUGS (8)
  1. SOTALEX [Concomitant]
     Active Substance: SOTALOL
     Dosage: UNK
  2. OLANZAPINE. [Suspect]
     Active Substance: OLANZAPINE
     Indication: SCHIZOPHRENIA
     Dosage: 10 MILLIGRAM, QD
     Route: 048
     Dates: end: 20190919
  3. MINIAS [Suspect]
     Active Substance: LORMETAZEPAM
     Indication: INSOMNIA
     Dosage: 30 GTT DROPS, QD
     Route: 048
  4. CONGESCOR [Concomitant]
     Active Substance: BISOPROLOL
     Dosage: UNK
  5. ENTRESTO [Concomitant]
     Active Substance: SACUBITRIL\VALSARTAN
  6. PANTORC [Concomitant]
     Active Substance: PANTOPRAZOLE SODIUM
     Dosage: UNK
  7. XARELTO [Concomitant]
     Active Substance: RIVAROXABAN
     Dosage: UNK
  8. ESILGAN [Suspect]
     Active Substance: ESTAZOLAM
     Indication: INSOMNIA
     Dosage: 2 DOSAGE FORM, QD
     Route: 048
     Dates: end: 20190919

REACTIONS (1)
  - Toxicity to various agents [Recovering/Resolving]

NARRATIVE: CASE EVENT DATE: 20190919
